FAERS Safety Report 5197351-2 (Version None)
Quarter: 2006Q4

REPORT INFORMATION
  Report Type: 
  Country: None (occurrence: None)
  Receive Date: 20060929
  Receipt Date: 20051121
  Transmission Date: 20070319
  Serious: Yes (Hospitalization)
  Sender: FDA-Public Use
  Company Number: 05P-163-0310884-00

PATIENT
  Age: 60 Year
  Sex: Male

DRUGS (6)
  1. DEPAKOTE ER [Suspect]
     Indication: BIPOLAR DISORDER
     Dosage: 1500 MG , PER ORAL
     Route: 048
     Dates: start: 20000801
  2. LANSOPRAZOLE [Concomitant]
  3. ATORVASTATIN CALCIUM [Concomitant]
  4. PROBENECID [Concomitant]
  5. LISINOPRIL [Concomitant]
  6. WARFARIN SODIUM [Concomitant]

REACTIONS (1)
  - PANCREATITIS ACUTE [None]
